FAERS Safety Report 5236607-1 (Version None)
Quarter: 2007Q1

REPORT INFORMATION
  Report Type: 
  Country: None (occurrence: None)
  Receive Date: 20070208
  Receipt Date: 20070202
  Transmission Date: 20070707
  Serious: Yes (Other)
  Sender: FDA-Public Use
  Company Number: 226147

PATIENT
  Age: 38 Year
  Sex: Male

DRUGS (5)
  1. XOLAIR [Suspect]
     Indication: ASTHMA
     Dosage: 300 MG, Q4W, SUBCUTANEOUS
     Route: 058
     Dates: start: 20050415
  2. ADVAIR DISKUS 100/50 [Concomitant]
  3. NEXIUM [Concomitant]
  4. SINGULAIR [Concomitant]
  5. ALBUTEROL (ALBUTEROL/ALBUTEROL SULFATE) [Concomitant]

REACTIONS (1)
  - BRAIN NEOPLASM [None]
